FAERS Safety Report 19873027 (Version 1)
Quarter: 2021Q3

REPORT INFORMATION
  Report Type: Spontaneous
  Country: CA (occurrence: CA)
  Receive Date: 20210923
  Receipt Date: 20210923
  Transmission Date: 20211014
  Serious: Yes (Life-Threatening, Hospitalization)
  Sender: FDA-Public Use
  Company Number: CA-TEVA-2021-CA-1955767

PATIENT
  Age: 40 Year
  Sex: Female
  Weight: 71 kg

DRUGS (13)
  1. CALCIUM CARBONATE. [Concomitant]
     Active Substance: CALCIUM CARBONATE
  2. FILGRASTIM [Concomitant]
     Active Substance: FILGRASTIM
  3. ZOPICLONE [Concomitant]
     Active Substance: ZOPICLONE
  4. DOXORUBICIN HYDROCHLORIDE INJECTION [Suspect]
     Active Substance: DOXORUBICIN HYDROCHLORIDE
     Route: 042
  5. METOCLOPRAMIDE. [Concomitant]
     Active Substance: METOCLOPRAMIDE
  6. NYSTATIN. [Concomitant]
     Active Substance: NYSTATIN
  7. ONDANSETRON [Concomitant]
     Active Substance: ONDANSETRON
  8. DIMENHYDRINATE. [Concomitant]
     Active Substance: DIMENHYDRINATE
  9. LORAZEPAM. [Concomitant]
     Active Substance: LORAZEPAM
  10. RIZATRIPTAN. [Concomitant]
     Active Substance: RIZATRIPTAN
  11. CYCLOPHOSPHAMIDE. [Suspect]
     Active Substance: CYCLOPHOSPHAMIDE
     Route: 042
  12. ESCITALOPRAM [Concomitant]
     Active Substance: ESCITALOPRAM OXALATE
  13. PANTOPRAZOLE [Concomitant]
     Active Substance: PANTOPRAZOLE

REACTIONS (1)
  - Febrile neutropenia [Recovered/Resolved]
